FAERS Safety Report 4473419-0 (Version None)
Quarter: 2004Q3

REPORT INFORMATION
  Report Type: 
  Country: None (occurrence: None)
  Receive Date: 20040909
  Receipt Date: 20040511
  Transmission Date: 20050211
  Serious: Yes (Other)
  Sender: FDA-Public Use
  Company Number: A03200401496

PATIENT
  Age: 51 Year
  Sex: Female
  Weight: 100.2449 kg

DRUGS (11)
  1. ELOXATIN [Suspect]
     Indication: COLON CANCER METASTATIC
     Dosage: 135 MG OTHER - INTRAVENOUS NOS
     Route: 042
     Dates: start: 20040504, end: 20040504
  2. ELOXATIN [Suspect]
     Indication: METASTASES TO LIVER
     Dosage: 135 MG OTHER - INTRAVENOUS NOS
     Route: 042
     Dates: start: 20040504, end: 20040504
  3. FLUOROURACIL [Concomitant]
  4. LEUCOVORIN CALCIUM [Concomitant]
  5. DIPHENHYDRAMINE HCL [Concomitant]
  6. DEXAMETHASONE [Concomitant]
  7. HYDROCHLOROTHIAZIDE [Concomitant]
  8. IRON WITH ASCORBIC ACID [Concomitant]
  9. VITAMIN B6 [Concomitant]
  10. PALONOSETRON HCL [Concomitant]
  11. APREPITANT [Concomitant]

REACTIONS (3)
  - LOCAL SWELLING [None]
  - RASH [None]
  - SWELLING FACE [None]
